FAERS Safety Report 16928177 (Version 1)
Quarter: 2019Q4

REPORT INFORMATION
  Report Type: Report from Study
  Country: None (occurrence: BR)
  Receive Date: 20191017
  Receipt Date: 20191017
  Transmission Date: 20200122
  Serious: Yes (Other)
  Sender: FDA-Public Use
  Company Number: BR-ABBVIE-19K-020-2965853-00

PATIENT
  Age: 59 Year
  Sex: Male
  Weight: 100 kg

DRUGS (1)
  1. HUMIRA [Suspect]
     Active Substance: ADALIMUMAB
     Indication: CROHN^S DISEASE
     Route: 058
     Dates: start: 20190912

REACTIONS (7)
  - Decreased appetite [Recovered/Resolved]
  - Memory impairment [Recovering/Resolving]
  - Therapeutic product effect incomplete [Unknown]
  - Gastrointestinal stoma complication [Recovering/Resolving]
  - Feeding disorder [Recovered/Resolved]
  - Surgery [Unknown]
  - Anxiety [Unknown]

NARRATIVE: CASE EVENT DATE: 20191008
